FAERS Safety Report 7153785-8 (Version None)
Quarter: 2010Q4

REPORT INFORMATION
  Report Type: 
  Country: None (occurrence: None)
  Receive Date: 20101213
  Receipt Date: 20101026
  Transmission Date: 20110411
  Serious: No
  Sender: FDA-Public Use
  Company Number: US-ABBOTT-10P-163-0682032-00

PATIENT
  Sex: Female
  Weight: 90.8 kg

DRUGS (5)
  1. MERIDIA [Suspect]
     Indication: DECREASED APPETITE
     Route: 048
  2. MERIDIA [Suspect]
     Indication: WEIGHT CONTROL
  3. BISOPROLOL [Concomitant]
     Indication: HYPERTENSION
  4. SIMVASTATIN [Concomitant]
     Indication: BLOOD CHOLESTEROL INCREASED
  5. ASPIRIN [Concomitant]
     Indication: PRODUCT USED FOR UNKNOWN INDICATION
     Route: 048

REACTIONS (3)
  - DRUG INEFFECTIVE [None]
  - INCREASED APPETITE [None]
  - MEDICATION ERROR [None]
